FAERS Safety Report 16057244 (Version 1)
Quarter: 2019Q1

REPORT INFORMATION
  Report Type: Spontaneous
  Country: US (occurrence: US)
  Receive Date: 20190311
  Receipt Date: 20190311
  Transmission Date: 20190418
  Serious: No
  Sender: FDA-Public Use
  Company Number: US-PFIZER INC-2019091411

PATIENT
  Sex: Male

DRUGS (2)
  1. XANAX [Suspect]
     Active Substance: ALPRAZOLAM
     Indication: PANIC DISORDER
     Dosage: 0.5 MG, 2X/DAY [0.5 MG IN THE MORNING AND 0.5 MG AT NIGHT]
  2. XANAX [Suspect]
     Active Substance: ALPRAZOLAM
     Indication: ANXIETY
     Dosage: 2 MG, DAILY

REACTIONS (4)
  - Tinnitus [Unknown]
  - Nausea [Unknown]
  - Product use issue [Unknown]
  - Withdrawal syndrome [Unknown]
